FAERS Safety Report 21172525 (Version 1)
Quarter: 2022Q3

REPORT INFORMATION
  Report Type: Spontaneous
  Country: HU (occurrence: HU)
  Receive Date: 20220804
  Receipt Date: 20220804
  Transmission Date: 20221026
  Serious: Yes (Other)
  Sender: FDA-Public Use
  Company Number: HU-BAYER-2022P009252

PATIENT
  Age: 40 Year
  Sex: Female

DRUGS (2)
  1. MIRENA [Suspect]
     Active Substance: LEVONORGESTREL
     Indication: Leiomyoma
     Dosage: 20?G/DAY
     Route: 015
     Dates: start: 20210929, end: 20220622
  2. LEVOTHYROXINE SODIUM [Concomitant]
     Active Substance: LEVOTHYROXINE SODIUM
     Indication: Hypothyroidism

REACTIONS (7)
  - Genital haemorrhage [Recovered/Resolved]
  - Uterine polyp [None]
  - Vaginal discharge [Recovered/Resolved]
  - Uterine leiomyoma [None]
  - Abdominal pain lower [Recovered/Resolved]
  - Product use in unapproved indication [None]
  - Off label use of device [None]

NARRATIVE: CASE EVENT DATE: 20211201
